FAERS Safety Report 6554924-X (Version None)
Quarter: 2010Q1

REPORT INFORMATION
  Report Type: 
  Country: None (occurrence: None)
  Receive Date: 20100127
  Receipt Date: 20100118
  Transmission Date: 20100710
  Serious: Yes (Death, Other)
  Sender: FDA-Public Use
  Company Number: GB-GENENTECH-263708

PATIENT
  Sex: Female

DRUGS (10)
  1. MABTHERA [Suspect]
     Indication: HAIRY CELL LEUKAEMIA
     Dosage: 670 MG, UNK
     Route: 042
     Dates: start: 20080621, end: 20080621
  2. MABTHERA [Suspect]
     Dosage: 375 MG/M2, 1/WEEK
     Route: 042
     Dates: start: 20070701
  3. ADALAT [Concomitant]
     Indication: HYPERTENSION
     Dosage: 10 MG, UNK
     Route: 048
  4. LEVOTHYROXINE SODIUM [Concomitant]
     Indication: HYPOTHYROIDISM
     Route: 048
  5. RISEDRONATE SODIUM [Concomitant]
     Indication: DRUG USE FOR UNKNOWN INDICATION
     Dosage: 35 MG, 1/WEEK
     Route: 048
  6. ALLOPURINOL [Concomitant]
     Indication: PROPHYLAXIS
     Dosage: 300 MG, QD
     Route: 048
     Dates: start: 20080620
  7. ASPIRIN [Concomitant]
     Indication: DRUG USE FOR UNKNOWN INDICATION
     Dosage: 75 MG, QD
     Dates: end: 20080619
  8. ACICLOVIR [Concomitant]
     Indication: INFECTION PROPHYLAXIS
     Dosage: 400 MG, BID
     Dates: start: 20080620
  9. NYSTATIN [Concomitant]
     Indication: INFECTION PROPHYLAXIS
     Dosage: UNK
     Dates: start: 20080620
  10. CHLORHEXIDINE GLUCONATE [Concomitant]
     Indication: INFECTION PROPHYLAXIS
     Dosage: 10 ML, UNK
     Dates: start: 20080620

REACTIONS (5)
  - CEREBRAL HAEMORRHAGE [None]
  - DISSEMINATED INTRAVASCULAR COAGULATION [None]
  - SPLENOMEGALY [None]
  - SUBDURAL HAEMATOMA [None]
  - THROMBOCYTOPENIA [None]
